FAERS Safety Report 6445014-5 (Version None)
Quarter: 2009Q4

REPORT INFORMATION
  Report Type: 
  Country: None (occurrence: None)
  Receive Date: 20091110
  Receipt Date: 20091005
  Transmission Date: 20100525
  Serious: No
  Sender: FDA-Public Use
  Company Number: 1000009269

PATIENT
  Age: 51 Year
  Sex: Female

DRUGS (11)
  1. SAVELLA [Suspect]
     Indication: FIBROMYALGIA
     Dosage: 12.5 MG (12.5 MG, 1 IN 1 D), ORAL, 25 MG (12.5 MG, 2 IN 1 D), ORAL, 50 MG (25 MG, 2 IN 1 D), ORAL
     Route: 048
     Dates: start: 20090701, end: 20090101
  2. SAVELLA [Suspect]
     Indication: FIBROMYALGIA
     Dosage: 12.5 MG (12.5 MG, 1 IN 1 D), ORAL, 25 MG (12.5 MG, 2 IN 1 D), ORAL, 50 MG (25 MG, 2 IN 1 D), ORAL
     Route: 048
     Dates: start: 20090701, end: 20090701
  3. SAVELLA [Suspect]
     Indication: FIBROMYALGIA
     Dosage: 12.5 MG (12.5 MG, 1 IN 1 D), ORAL, 25 MG (12.5 MG, 2 IN 1 D), ORAL, 50 MG (25 MG, 2 IN 1 D), ORAL
     Route: 048
     Dates: start: 20090701, end: 20090701
  4. SAVELLA [Suspect]
     Indication: FIBROMYALGIA
     Dosage: 100 MG (50 MG, 2 IN 1 D), ORAL
     Route: 048
     Dates: start: 20090101, end: 20090101
  5. SAVELLA [Suspect]
     Indication: FIBROMYALGIA
     Dosage: SEE IMAGE
     Route: 048
     Dates: start: 20090827, end: 20090827
  6. SAVELLA [Suspect]
     Indication: FIBROMYALGIA
     Dosage: SEE IMAGE
     Route: 048
     Dates: start: 20090828, end: 20090829
  7. SAVELLA [Suspect]
     Indication: FIBROMYALGIA
     Dosage: SEE IMAGE
     Route: 048
     Dates: start: 20090830, end: 20090902
  8. SAVELLA [Suspect]
     Indication: FIBROMYALGIA
     Dosage: SEE IMAGE
     Route: 048
     Dates: start: 20090903
  9. PROVENTIL [Concomitant]
  10. ADVAIR DISKUS 100/50 [Concomitant]
  11. MULTI-VITAMIN [Concomitant]

REACTIONS (4)
  - DYSGEUSIA [None]
  - HEADACHE [None]
  - NAUSEA [None]
  - VOMITING [None]
